FAERS Safety Report 23400310 (Version 1)
Quarter: 2024Q1

REPORT INFORMATION
  Report Type: Spontaneous
  Country: US (occurrence: US)
  Receive Date: 20240115
  Receipt Date: 20240115
  Transmission Date: 20240410
  Serious: No
  Sender: FDA-Public Use
  Company Number: US-TOLMAR, INC.-23US045633

PATIENT
  Age: 8 Year
  Sex: Female

DRUGS (2)
  1. FENSOLVI [Suspect]
     Active Substance: LEUPROLIDE ACETATE
     Indication: Growth disorder
     Dosage: 45 MILLIGRAM
     Dates: start: 20230628
  2. FENSOLVI [Suspect]
     Active Substance: LEUPROLIDE ACETATE
     Dosage: 45 MILLIGRAM
     Dates: start: 20231220

REACTIONS (3)
  - Intercepted product preparation error [Unknown]
  - Syringe issue [Unknown]
  - Off label use [Unknown]

NARRATIVE: CASE EVENT DATE: 20231220
